FAERS Safety Report 6613449-3 (Version None)
Quarter: 2010Q1

REPORT INFORMATION
  Report Type: 
  Country: None (occurrence: None)
  Receive Date: 20100224
  Receipt Date: 20090824
  Transmission Date: 20100710
  Serious: Yes (Other)
  Sender: FDA-Public Use
  Company Number: WWISSUE-332

PATIENT
  Sex: Female

DRUGS (1)
  1. PREDNISONE [Suspect]
     Dates: start: 20090819, end: 20090824

REACTIONS (3)
  - ABDOMINAL DISCOMFORT [None]
  - HYPERHIDROSIS [None]
  - PALPITATIONS [None]
